FAERS Safety Report 6616896-9 (Version None)
Quarter: 2010Q1

REPORT INFORMATION
  Report Type: 
  Country: None (occurrence: None)
  Receive Date: 20100305
  Receipt Date: 20100223
  Transmission Date: 20100710
  Serious: Yes (Other)
  Sender: FDA-Public Use
  Company Number: US-PFIZER INC-2010024468

PATIENT
  Sex: Female
  Weight: 94.347 kg

DRUGS (4)
  1. CHANTIX [Suspect]
     Indication: SMOKING CESSATION THERAPY
     Dosage: FREQUENCY: 2X/DAY,
     Route: 048
     Dates: start: 20100218
  2. PROZAC [Concomitant]
  3. NORVASC [Concomitant]
  4. ATENOLOL [Concomitant]

REACTIONS (7)
  - DISCOMFORT [None]
  - DYSPNOEA [None]
  - FACE OEDEMA [None]
  - LOCAL SWELLING [None]
  - PHARYNGEAL OEDEMA [None]
  - THINKING ABNORMAL [None]
  - THROAT IRRITATION [None]
